FAERS Safety Report 15192923 (Version 4)
Quarter: 2018Q3

REPORT INFORMATION
  Report Type: Spontaneous
  Country: JP (occurrence: JP)
  Receive Date: 20180725
  Receipt Date: 20180807
  Transmission Date: 20181010
  Serious: Yes (Death, Hospitalization)
  Sender: FDA-Public Use
  Company Number: JP-ABBVIE-18K-087-2250492-00

PATIENT
  Age: 66 Year
  Sex: Male

DRUGS (2)
  1. DUODOPA [Suspect]
     Active Substance: CARBIDOPA\LEVODOPA
     Route: 050
  2. DUODOPA [Suspect]
     Active Substance: CARBIDOPA\LEVODOPA
     Indication: PARKINSON^S DISEASE
     Route: 050

REACTIONS (9)
  - Parkinson^s disease [Unknown]
  - Stoma site pain [Unknown]
  - General symptom [Unknown]
  - Anaemia [Unknown]
  - Device loosening [Unknown]
  - Device issue [Unknown]
  - Death [Fatal]
  - Device damage [Unknown]
  - Fall [Unknown]

NARRATIVE: CASE EVENT DATE: 20180308
